FAERS Safety Report 7420399-1 (Version None)
Quarter: 2011Q2

REPORT INFORMATION
  Report Type: 
  Country: None (occurrence: None)
  Receive Date: 20110418
  Receipt Date: 20110414
  Transmission Date: 20111010
  Serious: Yes (Other)
  Sender: FDA-Public Use
  Company Number: US-PFIZER INC-2011082927

PATIENT
  Sex: Female
  Weight: 61 kg

DRUGS (2)
  1. CHANTIX [Suspect]
     Indication: SMOKING CESSATION THERAPY
     Dosage: 0.5 MG, DAILY
     Dates: start: 20110222, end: 20110101
  2. METHYLIN [Concomitant]
     Indication: BRAIN INJURY
     Dosage: 20 MG, UNK

REACTIONS (7)
  - ONYCHOCLASIS [None]
  - MYDRIASIS [None]
  - RASH [None]
  - SKIN EXFOLIATION [None]
  - FATIGUE [None]
  - DIZZINESS POSTURAL [None]
  - DEPRESSION [None]
